FAERS Safety Report 5739719-9 (Version None)
Quarter: 2008Q2

REPORT INFORMATION
  Report Type: 
  Country: None (occurrence: None)
  Receive Date: 20080516
  Receipt Date: 20080425
  Transmission Date: 20081010
  Serious: Yes (Death)
  Sender: FDA-Public Use
  Company Number: GB-RANBAXY-2008RR-12354

PATIENT

DRUGS (3)
  1. SIMVASTATIN [Suspect]
     Indication: BLOOD CHOLESTEROL INCREASED
     Dosage: UNK
     Route: 048
     Dates: start: 20070401
  2. ASPIRIN [Concomitant]
     Dosage: UNK
     Route: 065
     Dates: start: 20050117
  3. METFORMIN HCL [Concomitant]
     Dosage: 2 DF, BID
     Route: 048
     Dates: start: 20050117

REACTIONS (6)
  - ABNORMAL DREAMS [None]
  - AMNESIA [None]
  - COMPLETED SUICIDE [None]
  - MENTAL DISORDER [None]
  - MULTIPLE INJURIES [None]
  - NIGHTMARE [None]
